FAERS Safety Report 7467259-8 (Version None)
Quarter: 2011Q2

REPORT INFORMATION
  Report Type: 
  Country: None (occurrence: None)
  Receive Date: 20110509
  Receipt Date: 20101118
  Transmission Date: 20111010
  Serious: No
  Sender: FDA-Public Use
  Company Number: PR-ALEXION-A201001489

PATIENT
  Sex: Female

DRUGS (2)
  1. SOLIRIS [Suspect]
     Indication: PAROXYSMAL NOCTURNAL HAEMOGLOBINURIA
     Dosage: UNK
     Route: 042
     Dates: start: 20090323
  2. SOLIRIS [Suspect]
     Dosage: 900 MG, UNK
     Route: 042

REACTIONS (1)
  - UMBILICAL HERNIA REPAIR [None]
